APPROVED DRUG PRODUCT: PRANTAL
Active Ingredient: DIPHEMANIL METHYLSULFATE
Strength: 100MG
Dosage Form/Route: TABLET;ORAL
Application: N008114 | Product #004
Applicant: SCHERING CORP SUB SCHERING PLOUGH CORP
Approved: Approved Prior to Jan 1, 1982 | RLD: No | RS: No | Type: DISCN